FAERS Safety Report 23036356 (Version 2)
Quarter: 2023Q4

REPORT INFORMATION
  Report Type: Report from Study
  Country: US (occurrence: US)
  Receive Date: 20231006
  Receipt Date: 20231107
  Transmission Date: 20240109
  Serious: Yes (Other)
  Sender: FDA-Public Use
  Company Number: US-ABBVIE-5438725

PATIENT
  Age: 52 Year
  Sex: Female

DRUGS (2)
  1. HUMIRA [Suspect]
     Active Substance: ADALIMUMAB
     Indication: Ankylosing spondylitis
     Route: 058
  2. HUMIRA [Suspect]
     Active Substance: ADALIMUMAB
     Route: 058

REACTIONS (6)
  - Tonsillectomy [Recovering/Resolving]
  - Dyspnoea [Unknown]
  - Polyp [Unknown]
  - Dysphagia [Unknown]
  - Infection [Unknown]
  - Surgery [Unknown]

NARRATIVE: CASE EVENT DATE: 20230928
